FAERS Safety Report 10507374 (Version 2)
Quarter: 2014Q4

REPORT INFORMATION
  Report Type: Spontaneous
  Country: GB (occurrence: GB)
  Receive Date: 20141009
  Receipt Date: 20141028
  Transmission Date: 20150528
  Serious: Yes (Other)
  Sender: FDA-Public Use
  Company Number: GB-BAYER-2014-147253

PATIENT
  Sex: Female

DRUGS (1)
  1. MIRENA [Suspect]
     Active Substance: LEVONORGESTREL

REACTIONS (12)
  - Arthralgia [None]
  - Asthenia [None]
  - Joint swelling [None]
  - Patient-device incompatibility [None]
  - Mental impairment [None]
  - Muscle spasms [None]
  - Myalgia [None]
  - Clumsiness [None]
  - Chills [None]
  - Paraesthesia [None]
  - Amnesia [None]
  - Musculoskeletal pain [None]
